FAERS Safety Report 20777111 (Version 1)
Quarter: 2022Q2

REPORT INFORMATION
  Report Type: Spontaneous
  Country: US (occurrence: US)
  Receive Date: 20220503
  Receipt Date: 20220503
  Transmission Date: 20220720
  Serious: Yes (Other)
  Sender: FDA-Public Use
  Company Number: US-drreddys-SPO/USA/22/0149312

PATIENT
  Age: 17 Year
  Sex: Male

DRUGS (2)
  1. ZENATANE [Suspect]
     Active Substance: ISOTRETINOIN
     Indication: Product used for unknown indication
     Dosage: RMA ISSUE DATE: 9 MARCH 2022 08:34:26 AM, 2 FEBRUARY 2022 12:21:21 PM AND 3 JANUARY 2022 11:59:24 AM
  2. ACCUTANE [Suspect]
     Active Substance: ISOTRETINOIN
     Indication: Product used for unknown indication
     Dosage: RMA ISSUE DATE: 30 NOVEMBER 2021 03:25:28 PM

REACTIONS (1)
  - Mood altered [Unknown]
